FAERS Safety Report 8556426-8 (Version None)
Quarter: 2012Q3

REPORT INFORMATION
  Report Type: 
  Country: None (occurrence: None)
  Receive Date: 20120801
  Receipt Date: 20120727
  Transmission Date: 20120928
  Serious: Yes (Hospitalization, Other)
  Sender: FDA-Public Use
  Company Number: PHHY2011BR76076

PATIENT
  Sex: Female

DRUGS (11)
  1. ENALAPRIL MALEATE [Concomitant]
     Indication: HYPERTENSION
     Dosage: 1 DF, BID
     Route: 048
  2. AMOXIL [Concomitant]
     Dosage: 1 DF, Q8H
  3. METHOTREXATE [Concomitant]
     Indication: PSORIASIS
     Dosage: 3 DF, QW
     Route: 048
     Dates: end: 20101201
  4. FORMOTEROL FUMARATE [Suspect]
     Indication: EMPHYSEMA
     Dosage: 1 DF, BID
  5. ATROVENT [Concomitant]
     Indication: EMPHYSEMA
     Dosage: 20 DF, TID
  6. SORINE [Concomitant]
     Indication: NASAL CONGESTION
     Route: 045
  7. HYDROCHLOROTHIAZIDE [Concomitant]
     Dosage: 1 DF, QD
     Route: 048
  8. PACONDRIL [Concomitant]
  9. TORSILAX [Concomitant]
     Dosage: 1 DF, QHS
     Route: 048
  10. BETNOVATE [Concomitant]
     Indication: PSORIASIS
     Route: 061
  11. GLYBURIDE [Concomitant]
     Route: 048

REACTIONS (11)
  - PULMONARY OEDEMA [None]
  - HYPERTENSION [None]
  - EMPHYSEMA [None]
  - DYSPNOEA [None]
  - INFARCTION [None]
  - FATIGUE [None]
  - BACK PAIN [None]
  - LUNG INFECTION [None]
  - STRESS [None]
  - URINARY INCONTINENCE [None]
  - CHEST PAIN [None]
